FAERS Safety Report 10213321 (Version 1)
Quarter: 2014Q2

REPORT INFORMATION
  Report Type: Spontaneous
  Country: US (occurrence: None)
  Receive Date: 20140530
  Receipt Date: 20140530
  Transmission Date: 20141212
  Serious: Yes (Hospitalization)
  Sender: FDA-Public Use
  Company Number: None

PATIENT
  Age: 63 Year
  Sex: Male
  Weight: 97 kg

DRUGS (2)
  1. QUETIAPINE [Suspect]
     Indication: SCHIZOPHRENIA, PARANOID TYPE
     Dosage: 600 MG, AT BEDTIME, PO
     Route: 048
     Dates: start: 20081104, end: 20140312
  2. CITALOPRAM [Suspect]
     Indication: DEPRESSION
     Dosage: 20 MG, EVERY DAY, PO?
     Route: 048
     Dates: start: 20090922, end: 20140312

REACTIONS (1)
  - Electrocardiogram QT prolonged [None]
